FAERS Safety Report 22980179 (Version 9)
Quarter: 2023Q4

REPORT INFORMATION
  Report Type: Report from Study
  Country: TR (occurrence: TR)
  Receive Date: 20230925
  Receipt Date: 20231208
  Transmission Date: 20240109
  Serious: Yes (Hospitalization)
  Sender: FDA-Public Use
  Company Number: TR-JNJFOC-20230934573

PATIENT
  Age: 59 Year
  Sex: Male
  Weight: 46.6 kg

DRUGS (47)
  1. TALQUETAMAB [Suspect]
     Active Substance: TALQUETAMAB
     Indication: Plasma cell myeloma
     Route: 058
     Dates: start: 20230510, end: 20231004
  2. DARATUMUMAB [Suspect]
     Active Substance: DARATUMUMAB
     Indication: Plasma cell myeloma
     Route: 058
     Dates: start: 20230509, end: 20231004
  3. POMALIDOMIDE [Suspect]
     Active Substance: POMALIDOMIDE
     Indication: Plasma cell myeloma
     Route: 048
     Dates: start: 20230608
  4. DEXAMETHASONE [Suspect]
     Active Substance: DEXAMETHASONE
     Indication: Plasma cell myeloma
     Route: 048
     Dates: start: 20230608, end: 20230809
  5. SULFAMETHOXAZOLE\TRIMETHOPRIM [Concomitant]
     Active Substance: SULFAMETHOXAZOLE\TRIMETHOPRIM
     Indication: Antibiotic prophylaxis
     Dosage: 800/160
     Route: 048
     Dates: start: 20230509
  6. SULFAMETHOXAZOLE\TRIMETHOPRIM [Concomitant]
     Active Substance: SULFAMETHOXAZOLE\TRIMETHOPRIM
     Route: 048
     Dates: start: 20231004, end: 20231011
  7. ACETAMINOPHEN\CAFFEINE\CODEINE PHOSPHATE [Concomitant]
     Active Substance: ACETAMINOPHEN\CAFFEINE\CODEINE PHOSPHATE
     Indication: Pain prophylaxis
     Dosage: 500/30/10
     Route: 048
     Dates: start: 20230516
  8. ACETAMINOPHEN\CAFFEINE\CODEINE PHOSPHATE [Concomitant]
     Active Substance: ACETAMINOPHEN\CAFFEINE\CODEINE PHOSPHATE
     Dosage: 500/30/10
     Route: 048
     Dates: start: 20231005, end: 20231005
  9. ACETAMINOPHEN\CAFFEINE\CODEINE PHOSPHATE [Concomitant]
     Active Substance: ACETAMINOPHEN\CAFFEINE\CODEINE PHOSPHATE
     Dosage: 500/30/10
     Route: 048
     Dates: start: 20231008, end: 20231008
  10. FILGRASTIM [Concomitant]
     Active Substance: FILGRASTIM
     Indication: Prophylaxis
     Route: 058
     Dates: start: 20230612
  11. FILGRASTIM [Concomitant]
     Active Substance: FILGRASTIM
     Route: 058
     Dates: start: 20231004, end: 20231004
  12. MEGESTROL ACETATE [Concomitant]
     Active Substance: MEGESTROL ACETATE
     Indication: Decreased appetite
     Route: 048
     Dates: start: 20230803
  13. ACYCLOVIR [Concomitant]
     Active Substance: ACYCLOVIR
     Indication: Antiviral prophylaxis
     Route: 048
     Dates: start: 20230509
  14. IPRATROPIUM BROMIDE [Concomitant]
     Active Substance: IPRATROPIUM BROMIDE\IPRATROPIUM BROMIDE ANHYDROUS
     Indication: Pneumonia
     Route: 055
     Dates: start: 20230908, end: 20230920
  15. MIDAZOLAM [Concomitant]
     Active Substance: MIDAZOLAM
     Indication: Oesophagoscopy
     Route: 042
     Dates: start: 20230908, end: 20230908
  16. MIDAZOLAM [Concomitant]
     Active Substance: MIDAZOLAM
     Indication: Endoscopy upper gastrointestinal tract
  17. MIDAZOLAM [Concomitant]
     Active Substance: MIDAZOLAM
     Indication: Endoscopy small intestine
  18. DEXAMETHASONE [Concomitant]
     Active Substance: DEXAMETHASONE
     Indication: Cataract operation
     Route: 042
     Dates: start: 20230909, end: 20230909
  19. DEXAMETHASONE [Concomitant]
     Active Substance: DEXAMETHASONE
     Route: 047
     Dates: start: 20231006, end: 20231011
  20. HUMAN IMMUNOGLOBULIN G [Concomitant]
     Active Substance: HUMAN IMMUNOGLOBULIN G
     Indication: Prophylaxis
     Route: 042
     Dates: start: 20230909, end: 20230909
  21. HUMAN IMMUNOGLOBULIN G [Concomitant]
     Active Substance: HUMAN IMMUNOGLOBULIN G
     Route: 042
     Dates: start: 20231011, end: 20231011
  22. ACETAMINOPHEN [Concomitant]
     Active Substance: ACETAMINOPHEN
     Indication: Prophylaxis
     Route: 042
     Dates: start: 20230909, end: 20230909
  23. ACETAMINOPHEN [Concomitant]
     Active Substance: ACETAMINOPHEN
     Route: 042
     Dates: start: 20230908, end: 20230919
  24. MEPERIDINE [Concomitant]
     Active Substance: MEPERIDINE
     Indication: Oesophagoscopy
     Route: 042
     Dates: start: 20230908, end: 20230908
  25. MEPERIDINE [Concomitant]
     Active Substance: MEPERIDINE
     Indication: Endoscopy upper gastrointestinal tract
  26. MEPERIDINE [Concomitant]
     Active Substance: MEPERIDINE
     Indication: Endoscopy small intestine
  27. TRAMADOL [Concomitant]
     Active Substance: TRAMADOL\TRAMADOL HYDROCHLORIDE
     Indication: Prophylaxis
     Route: 042
     Dates: start: 20230912, end: 20230922
  28. TRAMADOL [Concomitant]
     Active Substance: TRAMADOL\TRAMADOL HYDROCHLORIDE
     Route: 042
     Dates: start: 20231006, end: 20231007
  29. BUDESONIDE [Concomitant]
     Active Substance: BUDESONIDE
     Indication: Pneumonia
     Dosage: FREQ: PRN
     Route: 055
     Dates: start: 20230906, end: 20230921
  30. MAGNESIUM [Concomitant]
     Active Substance: MAGNESIUM
     Indication: Prophylaxis
     Route: 042
     Dates: start: 20230911, end: 20230911
  31. POTASSIUM [Concomitant]
     Active Substance: POTASSIUM
     Indication: Prophylaxis
     Dosage: FREQ: ONCE
     Route: 042
     Dates: start: 20230911, end: 20230911
  32. FLUCONAZOLE [Concomitant]
     Active Substance: FLUCONAZOLE
     Indication: Oesophageal candidiasis
     Route: 042
     Dates: start: 20230908, end: 20230908
  33. AVIL [PHENIRAMINE MALEATE] [Concomitant]
     Indication: Plasma cell myeloma
     Route: 042
     Dates: start: 20230909, end: 20230909
  34. BENZALKONIUM CHLORIDE [Concomitant]
     Active Substance: BENZALKONIUM CHLORIDE
     Indication: Cataract operation
     Dosage: FREQ: OTHER
     Route: 047
     Dates: start: 20230919
  35. BENZALKONIUM CHLORIDE [Concomitant]
     Active Substance: BENZALKONIUM CHLORIDE
     Indication: Cataract operation
     Route: 047
     Dates: start: 20231007, end: 20231011
  36. BRINZOLAMIDE\TIMOLOL [Concomitant]
     Active Substance: BRINZOLAMIDE\TIMOLOL
     Indication: Cataract operation
     Dosage: 10/5?FREQ: QID
     Route: 047
     Dates: start: 20230919
  37. BRINZOLAMIDE\TIMOLOL [Concomitant]
     Active Substance: BRINZOLAMIDE\TIMOLOL
     Route: 047
     Dates: start: 20231006, end: 20231006
  38. DEXAMETHASONE [Concomitant]
     Active Substance: DEXAMETHASONE
     Indication: Cataract operation
     Dosage: FREQ: OTHER
     Route: 047
     Dates: start: 20230919
  39. DEXAMETHASONE [Concomitant]
     Active Substance: DEXAMETHASONE
     Route: 042
     Dates: start: 20231011, end: 20231011
  40. MOXIFLOXACIN [Concomitant]
     Active Substance: MOXIFLOXACIN
     Indication: Cataract operation
     Dosage: FREQ: OTHER
     Route: 047
     Dates: start: 20230919
  41. MOXIFLOXACIN [Concomitant]
     Active Substance: MOXIFLOXACIN
     Indication: Cataract operation
     Route: 047
     Dates: start: 20231006, end: 20231011
  42. MOXIFLOXACIN [Concomitant]
     Active Substance: MOXIFLOXACIN
     Indication: Antibiotic prophylaxis
     Route: 042
     Dates: start: 20231008, end: 20231011
  43. PANTOPRAZOLE SODIUM [Concomitant]
     Active Substance: PANTOPRAZOLE SODIUM
     Indication: Antacid therapy
     Route: 048
     Dates: start: 20231005, end: 20231012
  44. ACETAZOLAMIDE [Concomitant]
     Active Substance: ACETAZOLAMIDE
     Indication: Cataract subcapsular
     Route: 048
     Dates: start: 20231006, end: 20231006
  45. FENTANYL [Concomitant]
     Active Substance: FENTANYL\FENTANYL CITRATE
     Indication: Prophylaxis
     Route: 048
     Dates: start: 20231009, end: 20231009
  46. FENTANYL [Concomitant]
     Active Substance: FENTANYL\FENTANYL CITRATE
     Route: 048
     Dates: start: 20231012, end: 20231012
  47. NEPAFENAC [Concomitant]
     Active Substance: NEPAFENAC
     Indication: Cataract operation
     Route: 047
     Dates: start: 20231009, end: 20231009

REACTIONS (2)
  - Febrile neutropenia [Recovered/Resolved]
  - Febrile neutropenia [Not Recovered/Not Resolved]

NARRATIVE: CASE EVENT DATE: 20230908
